FAERS Safety Report 18731752 (Version 1)
Quarter: 2021Q1

REPORT INFORMATION
  Report Type: Spontaneous
  Country: CA (occurrence: CA)
  Receive Date: 20210112
  Receipt Date: 20210112
  Transmission Date: 20210419
  Serious: Yes (Death, Hospitalization)
  Sender: FDA-Public Use
  Company Number: CA-TEVA-2021-CA-1866394

PATIENT
  Age: 47 Year
  Sex: Female
  Weight: 111 kg

DRUGS (11)
  1. KADCYLA [Suspect]
     Active Substance: ADO-TRASTUZUMAB EMTANSINE
     Indication: HER2 POSITIVE BREAST CANCER
     Route: 065
  2. KEPPRA [Concomitant]
     Active Substance: LEVETIRACETAM
  3. SYNTHROID [Concomitant]
     Active Substance: LEVOTHYROXINE SODIUM
  4. TAMOXIFEN [Suspect]
     Active Substance: TAMOXIFEN
     Indication: BREAST CANCER
     Route: 048
  5. TRASTUZUMAB. [Suspect]
     Active Substance: TRASTUZUMAB
     Indication: BREAST CANCER METASTATIC
     Route: 065
  6. DEXAMETHASONE SODIUM PHOSPHATE. [Concomitant]
     Active Substance: DEXAMETHASONE SODIUM PHOSPHATE
  7. DOXORUBICIN HYDROCHLORIDE. [Suspect]
     Active Substance: DOXORUBICIN HYDROCHLORIDE
     Indication: BREAST CANCER
     Route: 042
  8. GABAPENTIN. [Concomitant]
     Active Substance: GABAPENTIN
     Route: 065
  9. CYCLOPHOSPHAMIDE. [Suspect]
     Active Substance: CYCLOPHOSPHAMIDE
     Indication: BREAST CANCER
     Route: 065
  10. HYDROMORPHONE [Concomitant]
     Active Substance: HYDROMORPHONE
     Route: 065
  11. TAXOTERE [Suspect]
     Active Substance: DOCETAXEL
     Indication: BREAST CANCER METASTATIC
     Route: 042

REACTIONS (50)
  - Death [Fatal]
  - Headache [Fatal]
  - Nasal dryness [Fatal]
  - Pneumonia [Fatal]
  - Arteriovenous malformation [Fatal]
  - Brain abscess [Fatal]
  - Clostridium difficile infection [Fatal]
  - Coagulopathy [Fatal]
  - Cough [Fatal]
  - Delirium [Fatal]
  - Heart rate increased [Fatal]
  - Hyponatraemia [Fatal]
  - Platelet count decreased [Fatal]
  - Gastric infection [Fatal]
  - Left ventricular dysfunction [Fatal]
  - Malaise [Fatal]
  - Obesity [Fatal]
  - Performance status decreased [Fatal]
  - Radiation necrosis [Fatal]
  - Cerebral haemorrhage [Fatal]
  - Hypotension [Fatal]
  - Influenza [Fatal]
  - Influenza like illness [Fatal]
  - Klebsiella infection [Fatal]
  - Nasopharyngitis [Fatal]
  - Neoplasm progression [Fatal]
  - Paraesthesia [Fatal]
  - Anaemia [Fatal]
  - Blood potassium abnormal [Fatal]
  - Depressed level of consciousness [Fatal]
  - Eastern Cooperative Oncology Group performance status worsened [Fatal]
  - General physical health deterioration [Fatal]
  - Muscular weakness [Fatal]
  - Pain [Fatal]
  - Seizure [Fatal]
  - Ventricular hypokinesia [Fatal]
  - Asthenia [Fatal]
  - Central nervous system infection [Fatal]
  - Cerebral haematoma [Fatal]
  - Cystitis [Fatal]
  - Decreased appetite [Fatal]
  - Mental disorder [Fatal]
  - Anorectal disorder [Fatal]
  - Blood phosphorus decreased [Fatal]
  - Fall [Fatal]
  - Left ventricular dilatation [Fatal]
  - Constipation [Fatal]
  - Hydrocephalus [Fatal]
  - Infusion related reaction [Fatal]
  - Weight decreased [Fatal]
